FAERS Safety Report 4692106-7 (Version None)
Quarter: 2005Q2

REPORT INFORMATION
  Report Type: 
  Country: None (occurrence: None)
  Receive Date: 20050614
  Receipt Date: 20050603
  Transmission Date: 20051028
  Serious: Yes (Disabling, Other)
  Sender: FDA-Public Use
  Company Number: 2005074797

PATIENT
  Age: 61 Year
  Sex: Female
  Weight: 74.3899 kg

DRUGS (1)
  1. BENADRYL [Suspect]
     Indication: NASAL CONGESTION
     Dosage: 1/2 TAB QD, ORAL
     Route: 048
     Dates: start: 20000101

REACTIONS (7)
  - ABDOMINAL PAIN UPPER [None]
  - BURSITIS [None]
  - DIFFICULTY IN WALKING [None]
  - DRY MOUTH [None]
  - DYSSTASIA [None]
  - GENITAL PAIN [None]
  - VAGINAL BURNING SENSATION [None]
